FAERS Safety Report 10730549 (Version 1)
Quarter: 2015Q1

REPORT INFORMATION
  Report Type: Spontaneous
  Country: US (occurrence: US)
  Receive Date: 20150122
  Receipt Date: 20150122
  Transmission Date: 20150721
  Serious: No
  Sender: FDA-Public Use
  Company Number: US-BAYER-2015-008693

PATIENT
  Sex: Female

DRUGS (3)
  1. FINACEA [Suspect]
     Active Substance: AZELAIC ACID
     Indication: ROSACEA
  2. SULFONE [Concomitant]
     Active Substance: UNSPECIFIED INGREDIENT
     Dosage: UNK
  3. METROGEL [Concomitant]
     Active Substance: METRONIDAZOLE

REACTIONS (1)
  - Condition aggravated [None]
